FAERS Safety Report 12249534 (Version 1)
Quarter: 2016Q2

REPORT INFORMATION
  Report Type: Spontaneous
  Country: DE (occurrence: DE)
  Receive Date: 20160408
  Receipt Date: 20160408
  Transmission Date: 20160815
  Serious: Yes (Hospitalization, Other)
  Sender: FDA-Public Use
  Company Number: DE-BAYER-2016-062582

PATIENT
  Age: 45 Year
  Sex: Female
  Weight: 54 kg

DRUGS (2)
  1. YASMIN [Suspect]
     Active Substance: DROSPIRENONE\ETHINYL ESTRADIOL
     Indication: ORAL CONTRACEPTION
     Dosage: UNK
     Route: 048
     Dates: start: 2015
  2. YASMIN [Suspect]
     Active Substance: DROSPIRENONE\ETHINYL ESTRADIOL
     Indication: ORAL CONTRACEPTION
     Dosage: UNK
     Route: 048
     Dates: start: 2008, end: 201501

REACTIONS (7)
  - Pleurisy [Unknown]
  - Deep vein thrombosis [Unknown]
  - Pleural effusion [Unknown]
  - Pain in extremity [Unknown]
  - Respiratory distress [Unknown]
  - Pulmonary embolism [None]
  - Pulmonary infarction [Unknown]

NARRATIVE: CASE EVENT DATE: 201512
